FAERS Safety Report 9866459 (Version 1)
Quarter: 2014Q1

REPORT INFORMATION
  Report Type: Spontaneous
  Country: FR (occurrence: FR)
  Receive Date: 20140204
  Receipt Date: 20140204
  Transmission Date: 20141002
  Serious: Yes (Life-Threatening)
  Sender: FDA-Public Use
  Company Number: FR-ROCHE-1339235

PATIENT
  Age: 75 Year
  Sex: Male

DRUGS (13)
  1. ROCEPHINE [Suspect]
     Indication: LUNG INFECTION
     Route: 042
     Dates: start: 20131021, end: 20131021
  2. MONICOR L.P. [Concomitant]
     Route: 065
  3. ESIDREX [Concomitant]
     Route: 065
  4. CONTRAMAL LP [Concomitant]
     Route: 065
  5. DOLIPRANE [Concomitant]
  6. CALCIPARINE [Concomitant]
  7. RENAGEL [Concomitant]
     Route: 065
  8. TARDYFERON (FRANCE) [Concomitant]
     Dosage: TARDYFERON B9
     Route: 065
  9. ZYLORIC [Concomitant]
     Route: 065
  10. ANAFRANIL [Concomitant]
     Route: 065
  11. ARANESP [Concomitant]
     Route: 065
  12. LASILIX SPECIAL [Concomitant]
     Route: 065
  13. PYOSTACINE [Concomitant]

REACTIONS (4)
  - Tryptase increased [Recovered/Resolved]
  - Histamine level increased [Recovered/Resolved]
  - Coma [Recovered/Resolved]
  - Bundle branch block [Recovered/Resolved]
